FAERS Safety Report 23587425 (Version 2)
Quarter: 2024Q4

REPORT INFORMATION
  Report Type: Spontaneous
  Country: CA (occurrence: CA)
  Receive Date: 20240301
  Receipt Date: 20241223
  Transmission Date: 20250115
  Serious: Yes (Other)
  Sender: PFIZER
  Company Number: CA-PFIZER INC-202400052027

PATIENT
  Age: 34 Year
  Sex: Female
  Weight: 81 kg

DRUGS (55)
  1. ERYTHROMYCIN [Suspect]
     Active Substance: ERYTHROMYCIN
     Dosage: 1 DF, 1X/DAY
  2. ERYTHROMYCIN [Suspect]
     Active Substance: ERYTHROMYCIN
     Indication: Acne
     Dosage: 1 DF, 1X/DAY
     Route: 061
  3. ERYTHROMYCIN [Suspect]
     Active Substance: ERYTHROMYCIN
     Dosage: 1 DF, 1X/DAY
  4. ERYTHROMYCIN [Suspect]
     Active Substance: ERYTHROMYCIN
     Dosage: 1 DF, 1X/DAY
  5. ERYTHROMYCIN [Suspect]
     Active Substance: ERYTHROMYCIN
     Dosage: 1 DF, 1X/DAY
     Route: 065
  6. BENZOYL PEROXIDE\CLINDAMYCIN [Suspect]
     Active Substance: BENZOYL PEROXIDE\CLINDAMYCIN
     Dosage: 1 DF, 1X/DAY
     Route: 062
  7. BENZOYL PEROXIDE\CLINDAMYCIN [Suspect]
     Active Substance: BENZOYL PEROXIDE\CLINDAMYCIN
     Dosage: 1 DF
  8. BENZOYL PEROXIDE\CLINDAMYCIN [Suspect]
     Active Substance: BENZOYL PEROXIDE\CLINDAMYCIN
     Dosage: 1 DF, 1X/DAY
  9. BENZOYL PEROXIDE\CLINDAMYCIN [Suspect]
     Active Substance: BENZOYL PEROXIDE\CLINDAMYCIN
     Dosage: 1 DF, 1X/DAY
     Route: 061
  10. BUPROPION [Suspect]
     Active Substance: BUPROPION
     Dosage: 1 DF, 1X/DAY
  11. BUPROPION [Suspect]
     Active Substance: BUPROPION
     Dosage: 1 DF, 1X/DAY
  12. BUPROPION [Suspect]
     Active Substance: BUPROPION
     Dosage: 300 MG, 1X/DAY
  13. BUPROPION [Suspect]
     Active Substance: BUPROPION
     Dosage: 300 MG, 1X/DAY
     Route: 048
  14. BUPROPION [Suspect]
     Active Substance: BUPROPION
     Dosage: 300 MG, 1X/DAY
     Route: 048
  15. BUPROPION [Suspect]
     Active Substance: BUPROPION
     Dosage: 1 DF
  16. BUPROPION [Suspect]
     Active Substance: BUPROPION
     Dosage: 300 MG, 1X/DAY
  17. BUPROPION [Suspect]
     Active Substance: BUPROPION
     Dosage: UNK
     Route: 065
  18. BUPROPION [Suspect]
     Active Substance: BUPROPION
     Dosage: 300 MG, 1X/DAY
     Route: 048
  19. BUPROPION [Suspect]
     Active Substance: BUPROPION
     Dosage: UNK
     Route: 065
  20. CYMBALTA [Suspect]
     Active Substance: DULOXETINE HYDROCHLORIDE
     Dosage: UNK
  21. CYMBALTA [Suspect]
     Active Substance: DULOXETINE HYDROCHLORIDE
     Dosage: UNK
     Route: 048
  22. CYMBALTA [Suspect]
     Active Substance: DULOXETINE HYDROCHLORIDE
     Dosage: 30 MG
     Route: 048
  23. CYMBALTA [Suspect]
     Active Substance: DULOXETINE HYDROCHLORIDE
     Dosage: UNK
     Route: 048
  24. CYMBALTA [Suspect]
     Active Substance: DULOXETINE HYDROCHLORIDE
     Dosage: 30 MG
     Route: 065
  25. CYMBALTA [Suspect]
     Active Substance: DULOXETINE HYDROCHLORIDE
     Dosage: 30 MG
     Route: 065
  26. DULOXETINE [Suspect]
     Active Substance: DULOXETINE
     Dosage: 30 MG
  27. ERYTHROMYCIN PROPIONATE [Suspect]
     Active Substance: ERYTHROMYCIN PROPIONATE
     Indication: Acne
     Dosage: 1 DF
  28. ERYTHROMYCIN PROPIONATE [Suspect]
     Active Substance: ERYTHROMYCIN PROPIONATE
     Dosage: 1X/DAY
  29. ERYTHROMYCIN\TRETINOIN [Suspect]
     Active Substance: ERYTHROMYCIN\TRETINOIN
     Indication: Acne
     Dosage: 1 DF, 1X/DAY
  30. QUETIAPINE [Suspect]
     Active Substance: QUETIAPINE
     Dosage: 1 DF, 1X/DAY
     Route: 048
  31. QUETIAPINE [Suspect]
     Active Substance: QUETIAPINE
     Dosage: 100 MG, 1X/DAY
     Route: 048
  32. QUETIAPINE [Suspect]
     Active Substance: QUETIAPINE
     Dosage: 1 DF, 1X/DAY
     Route: 048
  33. QUETIAPINE [Suspect]
     Active Substance: QUETIAPINE
     Dosage: 1X/DAY
     Route: 048
  34. QUETIAPINE [Suspect]
     Active Substance: QUETIAPINE
     Dosage: 100 MG, 1X/DAY
     Route: 048
  35. QUETIAPINE [Suspect]
     Active Substance: QUETIAPINE
     Dosage: 1 DF, 1X/DAY
     Route: 048
  36. QUETIAPINE [Suspect]
     Active Substance: QUETIAPINE
     Dosage: 100 MG, 1X/DAY
     Route: 048
  37. DULOXETINE HYDROCHLORIDE [Suspect]
     Active Substance: DULOXETINE HYDROCHLORIDE
     Dosage: UNK
     Route: 048
  38. DULOXETINE HYDROCHLORIDE [Suspect]
     Active Substance: DULOXETINE HYDROCHLORIDE
     Dosage: 30 MG
     Route: 065
  39. DULOXETINE HYDROCHLORIDE [Suspect]
     Active Substance: DULOXETINE HYDROCHLORIDE
     Dosage: 30
  40. DULOXETINE HYDROCHLORIDE [Suspect]
     Active Substance: DULOXETINE HYDROCHLORIDE
     Dosage: UNK
     Route: 065
  41. TRETINOIN [Suspect]
     Active Substance: TRETINOIN
     Indication: Acne
     Dosage: 1 DF, DAILY
     Route: 061
  42. TRETINOIN [Suspect]
     Active Substance: TRETINOIN
     Dosage: 1 DF, 1X/DAY
     Route: 061
  43. TRETINOIN [Suspect]
     Active Substance: TRETINOIN
     Dosage: 1 DF, 1X/DAY
     Route: 061
  44. WELLBUTRIN XL [Suspect]
     Active Substance: BUPROPION HYDROCHLORIDE
     Dosage: 1 DF, 1X/DAY
  45. WELLBUTRIN XL [Suspect]
     Active Substance: BUPROPION HYDROCHLORIDE
     Dosage: 300 MG, 1X/DAY
  46. WELLBUTRIN XL [Suspect]
     Active Substance: BUPROPION HYDROCHLORIDE
     Dosage: 300 MG, 1X/DAY
     Route: 048
  47. WELLBUTRIN XL [Suspect]
     Active Substance: BUPROPION HYDROCHLORIDE
     Dosage: 1 DF, 1X/DAY
     Route: 065
  48. WELLBUTRIN XL [Suspect]
     Active Substance: BUPROPION HYDROCHLORIDE
     Dosage: 300 MG, 1X/DAY
     Route: 048
  49. WELLBUTRIN XL [Suspect]
     Active Substance: BUPROPION HYDROCHLORIDE
     Dosage: 300 MG, 1X/DAY
     Route: 048
  50. WELLBUTRIN XL [Suspect]
     Active Substance: BUPROPION HYDROCHLORIDE
     Dosage: 1X/DAY
     Route: 065
  51. WELLBUTRIN XL [Suspect]
     Active Substance: BUPROPION HYDROCHLORIDE
     Dosage: 300 MG, 1X/DAY
     Route: 065
  52. BUPROPION HYDROBROMIDE [Suspect]
     Active Substance: BUPROPION HYDROBROMIDE
     Dosage: 1 DF, 1X/DAY
     Route: 061
  53. BUPROPION HYDROBROMIDE [Suspect]
     Active Substance: BUPROPION HYDROBROMIDE
     Dosage: 300 MG, 1X/DAY
     Route: 061
  54. BUPROPION HYDROBROMIDE [Suspect]
     Active Substance: BUPROPION HYDROBROMIDE
     Dosage: 1X/DAY
     Route: 061
  55. BUPROPION HYDROBROMIDE [Suspect]
     Active Substance: BUPROPION HYDROBROMIDE
     Dosage: 300 MG, 1X/DAY
     Route: 061

REACTIONS (1)
  - Abortion spontaneous [Unknown]
